FAERS Safety Report 11356008 (Version 1)
Quarter: 2015Q3

REPORT INFORMATION
  Report Type: Report from Study
  Country: US (occurrence: US)
  Receive Date: 20150807
  Receipt Date: 20150807
  Transmission Date: 20151125
  Serious: No
  Sender: FDA-Public Use
  Company Number: US-ABBVIE-15P-163-1423770-00

PATIENT
  Sex: Male

DRUGS (1)
  1. VIEKIRA PAK [Suspect]
     Active Substance: DASABUVIR\OMBITASVIR\PARITAPREVIR\RITONAVIR
     Indication: HEPATITIS C
     Route: 048
     Dates: start: 20150701

REACTIONS (5)
  - Rhinorrhoea [Not Recovered/Not Resolved]
  - Nasopharyngitis [Not Recovered/Not Resolved]
  - Listless [Recovering/Resolving]
  - Nausea [Recovered/Resolved]
  - Fatigue [Recovering/Resolving]
